FAERS Safety Report 14508821 (Version 1)
Quarter: 2018Q1

REPORT INFORMATION
  Report Type: Spontaneous
  Country: US (occurrence: US)
  Receive Date: 20180209
  Receipt Date: 20180209
  Transmission Date: 20180509
  Serious: Yes (Other)
  Sender: FDA-Public Use
  Company Number: US-ASTRAZENECA-2018SE15010

PATIENT
  Age: 28356 Day
  Sex: Male
  Weight: 81.6 kg

DRUGS (4)
  1. LIPITOR [Concomitant]
     Active Substance: ATORVASTATIN CALCIUM
     Indication: BLOOD CHOLESTEROL INCREASED
     Dosage: AT NIGHT
     Route: 048
  2. ASPIRIN. [Concomitant]
     Active Substance: ASPIRIN
     Indication: PROPHYLAXIS
     Route: 048
  3. BRILINTA [Suspect]
     Active Substance: TICAGRELOR
     Indication: DEVICE OCCLUSION
     Dosage: TWO TIMES A DAY
     Route: 048
     Dates: start: 201710
  4. TYLENOL [Concomitant]
     Active Substance: ACETAMINOPHEN
     Indication: PAIN MANAGEMENT
     Route: 048
     Dates: start: 20180201

REACTIONS (6)
  - Device occlusion [Unknown]
  - Swelling face [Not Recovered/Not Resolved]
  - Contusion [Not Recovered/Not Resolved]
  - Basal cell carcinoma [Recovering/Resolving]
  - Eyelid ptosis [Not Recovered/Not Resolved]
  - Procedural pain [Not Recovered/Not Resolved]

NARRATIVE: CASE EVENT DATE: 20180201
